FAERS Safety Report 8823020 (Version 2)
Quarter: 2012Q4

REPORT INFORMATION
  Report Type: 
  Country: US (occurrence: US)
  Receive Date: 20121003
  Receipt Date: 20121029
  Transmission Date: 20130627
  Serious: No
  Sender: FDA-Public Use
  Company Number: US-009507513-1209USA009157

PATIENT

DRUGS (1)
  1. INVANZ [Suspect]
     Route: 042

REACTIONS (1)
  - Dizziness [Recovered/Resolved]
